FAERS Safety Report 9638277 (Version 4)
Quarter: 2014Q2

REPORT INFORMATION
  Report Type: Spontaneous
  Country: US (occurrence: US)
  Receive Date: 20131022
  Receipt Date: 20140606
  Transmission Date: 20141212
  Serious: Yes (Other)
  Sender: FDA-Public Use
  Company Number: US-PFIZER INC-2013300473

PATIENT
  Age: 60 Year
  Sex: Female
  Weight: 88.44 kg

DRUGS (10)
  1. XELJANZ [Suspect]
     Indication: RHEUMATOID ARTHRITIS
     Dosage: 5 MG, 2X/DAY
     Route: 048
     Dates: start: 20130918, end: 20130919
  2. MELOXICAM [Concomitant]
     Dosage: UNK
  3. LEVOTHYROXINE [Concomitant]
     Dosage: UNK
  4. VIIBRYD [Concomitant]
     Dosage: UNK
  5. VALACICLOVIR HYDROCHLORIDE [Concomitant]
     Dosage: UNK
  6. LISINOPRIL HCTZ [Concomitant]
     Dosage: UNK
  7. VITAMIN D [Concomitant]
     Dosage: UNK
  8. VOLTAREN [Concomitant]
     Dosage: UNK
  9. FLONASE [Concomitant]
     Dosage: UNK
  10. HYDROCODONE [Concomitant]
     Dosage: UNK

REACTIONS (3)
  - Deep vein thrombosis [Recovered/Resolved]
  - Sinusitis [Unknown]
  - Weight decreased [Unknown]
